FAERS Safety Report 9130743 (Version 6)
Quarter: 2014Q4

REPORT INFORMATION
  Report Type: Report from Study
  Country: DE (occurrence: DE)
  Receive Date: 20130301
  Receipt Date: 20141126
  Transmission Date: 20150529
  Serious: Yes (Other)
  Sender: FDA-Public Use
  Company Number: PHHO2013DE003175

PATIENT
  Age: 64 Year
  Sex: Male
  Weight: 93.8 kg

DRUGS (6)
  1. ASPIRIN. [Concomitant]
     Active Substance: ASPIRIN
     Indication: CEREBROVASCULAR ACCIDENT
     Dosage: 100 MG, QD (1-0-0)
     Route: 048
     Dates: start: 201201
  2. METFORMIN [Concomitant]
     Active Substance: METFORMIN HYDROCHLORIDE
     Indication: TYPE 2 DIABETES MELLITUS
     Dosage: 1000 MG, QD (1-0-0)
     Route: 048
  3. MICARDIS [Concomitant]
     Active Substance: TELMISARTAN
     Indication: HYPERTENSION
     Dosage: 20 MG, QD (1-0-0)
     Route: 048
  4. ACZ885 [Suspect]
     Active Substance: CANAKINUMAB
     Indication: ARTERIOSCLEROSIS
     Dosage: 150 MG
     Route: 058
     Dates: start: 20120821, end: 20130122
  5. NOVORAPID [Concomitant]
     Active Substance: INSULIN ASPART
     Indication: TYPE 2 DIABETES MELLITUS
     Dosage: PRANDIAL (CARBOHYDRATE FACTOR OF 4)
     Route: 058
  6. PROTAPHANE [Concomitant]
     Active Substance: INSULIN HUMAN
     Indication: TYPE 2 DIABETES MELLITUS
     Dosage: 26 U, QD (0-0-26)
     Route: 058

REACTIONS (1)
  - Malignant melanoma [Not Recovered/Not Resolved]

NARRATIVE: CASE EVENT DATE: 20130114
